FAERS Safety Report 7039048-X (Version None)
Quarter: 2010Q4

REPORT INFORMATION
  Report Type: 
  Country: None (occurrence: None)
  Receive Date: 20101012
  Receipt Date: 20100930
  Transmission Date: 20110411
  Serious: Yes (Hospitalization, Other)
  Sender: FDA-Public Use
  Company Number: US-ELI_LILLY_AND_COMPANY-US201010000359

PATIENT
  Age: 80 Year
  Sex: Female

DRUGS (11)
  1. FORTEO [Suspect]
     Indication: OSTEOPOROSIS
     Dosage: 20 UG, DAILY (1/D)
     Route: 065
     Dates: start: 20100819, end: 20100902
  2. LIPITOR [Concomitant]
     Dosage: 40 MG, EACH EVENING
     Route: 065
  3. CARVEDILOL [Concomitant]
     Dosage: 25 MG, 2/D
     Route: 065
  4. TEMAZEPAM [Concomitant]
     Dosage: 15 MG, EACH EVENING
     Route: 065
  5. ASPIRIN [Concomitant]
     Dosage: 81 MG, 2/D
     Route: 065
  6. PREDNISONE [Concomitant]
     Dosage: 5 MG, 3/D
     Route: 065
  7. SYNTHROID [Concomitant]
     Dosage: 0.075 MG, DAILY (1/D)
     Route: 065
  8. PLAVIX [Concomitant]
     Dosage: 75 MG, DAILY (1/D)
     Route: 065
  9. LOSARTAN POTASSIUM [Concomitant]
     Dosage: 50 MG, DAILY (1/D)
     Route: 065
  10. VITAMIN D3 [Concomitant]
     Dosage: 2000 IU, 2/D
     Route: 065
  11. CALCIUM [Concomitant]
     Dosage: 1200 MG, DAILY (1/D)
     Route: 065

REACTIONS (9)
  - ASTHENIA [None]
  - BACK PAIN [None]
  - DEEP VEIN THROMBOSIS [None]
  - FEELING ABNORMAL [None]
  - GAIT DISTURBANCE [None]
  - HAEMOGLOBIN DECREASED [None]
  - LETHARGY [None]
  - OEDEMA PERIPHERAL [None]
  - PULMONARY THROMBOSIS [None]
